FAERS Safety Report 6322979-3 (Version None)
Quarter: 2009Q3

REPORT INFORMATION
  Report Type: 
  Country: None (occurrence: None)
  Receive Date: 20090824
  Receipt Date: 20090312
  Transmission Date: 20100115
  Serious: No
  Sender: FDA-Public Use
  Company Number: US-ABBOTT-09P-163-0562579-00

PATIENT
  Sex: Male
  Weight: 104.42 kg

DRUGS (12)
  1. NIASPAN [Suspect]
     Indication: HIGH DENSITY LIPOPROTEIN DECREASED
     Dosage: PATIENT MADE 3 ATTEMPTS TO TAKE THE MEDICATION
     Route: 048
     Dates: start: 20060101, end: 20060101
  2. NIASPAN [Suspect]
     Route: 048
  3. NIASPAN [Suspect]
     Route: 048
     Dates: start: 20090101, end: 20090101
  4. LIPITOR [Concomitant]
     Indication: DRUG USE FOR UNKNOWN INDICATION
     Route: 048
  5. PLAVIX [Concomitant]
     Indication: ANTICOAGULANT THERAPY
     Route: 048
  6. METFORMIN HCL [Concomitant]
     Indication: BLOOD GLUCOSE ABNORMAL
     Route: 048
  7. UNKNOWN STOOL SOFTENER [Concomitant]
     Indication: DRUG USE FOR UNKNOWN INDICATION
     Dosage: AS NEEDED
  8. SAW PALMETTO [Concomitant]
     Indication: DRUG USE FOR UNKNOWN INDICATION
     Route: 048
  9. COZAAR [Concomitant]
     Indication: BLOOD PRESSURE
     Route: 048
  10. DILTIAZEM [Concomitant]
     Indication: DRUG USE FOR UNKNOWN INDICATION
     Route: 048
  11. NITROGLYCERIN [Concomitant]
     Indication: DRUG USE FOR UNKNOWN INDICATION
     Dosage: AS NEEDED
  12. FLUOXETINE [Concomitant]
     Indication: DEPRESSION
     Route: 048

REACTIONS (4)
  - FLUSHING [None]
  - INSOMNIA [None]
  - PAIN [None]
  - PRURITUS [None]
